FAERS Safety Report 17971471 (Version 1)
Quarter: 2020Q3

REPORT INFORMATION
  Report Type: Spontaneous
  Country: US (occurrence: US)
  Receive Date: 20200701
  Receipt Date: 20200701
  Transmission Date: 20201103
  Serious: Yes (Other)
  Sender: FDA-Public Use
  Company Number: US-BAUSCH-BL-2020-018216

PATIENT
  Age: 71 Year
  Sex: Female

DRUGS (1)
  1. PROLENSA [Suspect]
     Active Substance: BROMFENAC SODIUM
     Indication: POST PROCEDURAL INFECTION
     Route: 047

REACTIONS (2)
  - Eye infection [Unknown]
  - Cataract operation [Unknown]

NARRATIVE: CASE EVENT DATE: 2019
